FAERS Safety Report 9063190 (Version 1)
Quarter: 2013Q1

REPORT INFORMATION
  Report Type: Spontaneous
  Country: US (occurrence: US)
  Receive Date: 20130213
  Receipt Date: 20130213
  Transmission Date: 20140127
  Serious: Yes (Hospitalization)
  Sender: FDA-Public Use
  Company Number: US-GLAXOSMITHKLINE-A0817887A

PATIENT
  Age: 66 Year
  Sex: Male
  Weight: 92.7 kg

DRUGS (1)
  1. AVANDIA [Suspect]
     Indication: DIABETES MELLITUS
     Dosage: 4MG PER DAY
     Route: 048
     Dates: end: 200705

REACTIONS (3)
  - Cardiac murmur [Recovering/Resolving]
  - Aortic valve stenosis [Unknown]
  - Coronary artery bypass [Unknown]
